FAERS Safety Report 4681589-4 (Version None)
Quarter: 2005Q2

REPORT INFORMATION
  Report Type: 
  Country: None (occurrence: None)
  Receive Date: 20050602
  Receipt Date: 20050512
  Transmission Date: 20051028
  Serious: Yes (Other)
  Sender: FDA-Public Use
  Company Number: USA031254006

PATIENT
  Age: 88 Year
  Sex: Female
  Weight: 53 kg

DRUGS (10)
  1. FORTEO [Suspect]
     Indication: SPINAL FRACTURE
     Dates: start: 20030801, end: 20040101
  2. ATENOLOL [Concomitant]
  3. AVAPRO [Concomitant]
  4. ACCUPRIL [Concomitant]
  5. NORVASC [Concomitant]
  6. TORSEMIDE [Concomitant]
  7. LIPITOR [Concomitant]
  8. TEMAZEPAM [Concomitant]
  9. OSCAL (CALCIUM CARBONATE) [Concomitant]
  10. LEVOBUNOLOL [Concomitant]

REACTIONS (4)
  - DEHYDRATION [None]
  - LABORATORY TEST ABNORMAL [None]
  - SQUAMOUS CELL CARCINOMA OF THE CERVIX [None]
  - VAGINAL HAEMORRHAGE [None]
